FAERS Safety Report 7585187-4 (Version None)
Quarter: 2011Q3

REPORT INFORMATION
  Report Type: 
  Country: None (occurrence: None)
  Receive Date: 20110701
  Receipt Date: 20110623
  Transmission Date: 20111222
  Serious: Yes (Hospitalization)
  Sender: FDA-Public Use
  Company Number: US-BIOGENIDEC-2010BI041802

PATIENT
  Age: 57 Year
  Sex: Female

DRUGS (3)
  1. AVONEX [Suspect]
     Indication: MULTIPLE SCLEROSIS
     Route: 030
     Dates: start: 20110201
  2. AVONEX [Suspect]
     Route: 030
     Dates: start: 20030101, end: 20101016
  3. AVONEX [Suspect]
     Route: 030
     Dates: start: 19980101, end: 20030101

REACTIONS (2)
  - MALAISE [None]
  - MULTIPLE SCLEROSIS RELAPSE [None]
